FAERS Safety Report 10740792 (Version 2)
Quarter: 2015Q1

REPORT INFORMATION
  Report Type: Spontaneous
  Country: IT (occurrence: None)
  Receive Date: 20150123
  Receipt Date: 20150303
  Transmission Date: 20150721
  Serious: Yes (Other)
  Sender: FDA-Public Use
  Company Number: 2706618

PATIENT
  Age: 67 Year
  Sex: Female
  Weight: 78 kg

DRUGS (4)
  1. IRINOTECAN HYDROCHLORIDE. [Suspect]
     Active Substance: IRINOTECAN HYDROCHLORIDE
     Indication: COLON CANCER METASTATIC
     Dosage: 250 MG MILLIGRAM (S), CYCLICAL
     Route: 042
     Dates: start: 20140302, end: 20141216
  2. FLUOROURACIL. [Suspect]
     Active Substance: FLUOROURACIL
     Indication: COLON CANCER METASTATIC
     Dosage: 540 MG MILLIGRAM (S), CYCLICAL
     Route: 042
     Dates: start: 20140302, end: 20141216
  3. LEVOFOLINIC ACID [Concomitant]
     Active Substance: LEVOLEUCOVORIN
  4. ERBITUX [Suspect]
     Active Substance: CETUXIMAB
     Indication: COLON CANCER METASTATIC
     Dosage: 240 MG MILLIGRAM (S), CYCLICAL
     Route: 042
     Dates: start: 20140302, end: 20141216

REACTIONS (1)
  - Hypertensive crisis [None]

NARRATIVE: CASE EVENT DATE: 20140821
